FAERS Safety Report 24002944 (Version 1)
Quarter: 2024Q2

REPORT INFORMATION
  Report Type: Report from Study
  Country: US (occurrence: US)
  Receive Date: 20240624
  Receipt Date: 20240624
  Transmission Date: 20240716
  Serious: Yes (Hospitalization)
  Sender: FDA-Public Use
  Company Number: US-ABBVIE-5808460

PATIENT
  Age: 56 Year
  Sex: Female

DRUGS (1)
  1. SKYRIZI [Suspect]
     Active Substance: RISANKIZUMAB-RZAA
     Indication: Product used for unknown indication
     Dosage: LAST ADMIN DATE MAY 2024.
     Route: 058
     Dates: start: 20240520

REACTIONS (8)
  - Lyme disease [Unknown]
  - Dyspnoea [Recovering/Resolving]
  - Dyspnoea [Unknown]
  - Blood pressure decreased [Unknown]
  - Heart rate increased [Unknown]
  - Dehydration [Unknown]
  - Malaise [Recovering/Resolving]
  - Feeling abnormal [Unknown]

NARRATIVE: CASE EVENT DATE: 20240501
